FAERS Safety Report 24033595 (Version 3)
Quarter: 2024Q3

REPORT INFORMATION
  Report Type: Spontaneous
  Country: PT (occurrence: PT)
  Receive Date: 20240701
  Receipt Date: 20240917
  Transmission Date: 20241017
  Serious: Yes (Other)
  Sender: AUROBINDO
  Company Number: PT-ASPEN-GLO2024PT004023

PATIENT
  Age: 29 Year
  Sex: Female

DRUGS (7)
  1. ROPIVACAINE [Suspect]
     Active Substance: ROPIVACAINE
     Indication: Analgesic therapy
     Dosage: 8 MILLILITER (8 ML BOLUS OF 0,2%, PERFUSION OF 0,15% AT 7 ML/H))
     Route: 042
  2. ROPIVACAINE [Suspect]
     Active Substance: ROPIVACAINE
     Indication: Epidural analgesia
     Dosage: 7 MILLILITER, PERFUSION OF 0.15% ROPIVACAINE AT 7 ML/H
     Route: 042
  3. LIDOCAINE [Suspect]
     Active Substance: LIDOCAINE
     Indication: Caesarean section
     Dosage: 2 MILLIGRAM OF 2%
     Route: 042
  4. LIDOCAINE [Suspect]
     Active Substance: LIDOCAINE
     Indication: Epidural analgesia
  5. SUFENTANIL [Suspect]
     Active Substance: SUFENTANIL
     Indication: Caesarean section
     Dosage: 10 MCG
     Route: 065
  6. SUFENTANIL [Suspect]
     Active Substance: SUFENTANIL
     Indication: Analgesic therapy
  7. SUFENTANIL [Suspect]
     Active Substance: SUFENTANIL
     Indication: Epidural analgesia

REACTIONS (3)
  - Horner^s syndrome [Recovered/Resolved]
  - Sympathectomy [Recovered/Resolved]
  - Exposure during pregnancy [Unknown]
